FAERS Safety Report 8375976-0 (Version None)
Quarter: 2012Q2

REPORT INFORMATION
  Report Type: 
  Country: None (occurrence: None)
  Receive Date: 20120517
  Receipt Date: 20120509
  Transmission Date: 20120825
  Serious: Yes (Other)
  Sender: FDA-Public Use
  Company Number: 217460

PATIENT
  Age: 36 Year
  Sex: Male

DRUGS (2)
  1. HYDROCORTISONE (HYDROCOTISONE) [Concomitant]
  2. CALCIPOTRIENE AND BETAMETHASONE DIPROPIONATE [Suspect]
     Indication: PRODUCT USED FOR UNKNOWN INDICATION
     Dosage: (1 IN 1 D), ON ELBOWS AND KNEES FOR 6 MONTHS IN 2007 AND RESTART 2011

REACTIONS (1)
  - CATARACT [None]
